FAERS Safety Report 22343673 (Version 1)
Quarter: 2023Q2

REPORT INFORMATION
  Report Type: Spontaneous
  Country: FR (occurrence: FR)
  Receive Date: 20230519
  Receipt Date: 20230519
  Transmission Date: 20230721
  Serious: Yes (Other)
  Sender: FDA-Public Use
  Company Number: FR-AFSSAPS-NC2023000264

PATIENT
  Age: 48 Year
  Sex: Female
  Weight: 71 kg

DRUGS (4)
  1. FLUOXETINE [Suspect]
     Active Substance: FLUOXETINE HYDROCHLORIDE
     Indication: Depression
     Dosage: 20 MILLIGRAM, DAILY
     Route: 048
     Dates: start: 20221029, end: 20221130
  2. ARIPIPRAZOLE [Suspect]
     Active Substance: ARIPIPRAZOLE
     Indication: Personality disorder
     Dosage: 20 MILLIGRAM, DAILY
     Route: 048
     Dates: start: 20221104, end: 20221126
  3. ARIPIPRAZOLE [Suspect]
     Active Substance: ARIPIPRAZOLE
     Dosage: 10 MILLIGRAM, DAILY
     Route: 048
     Dates: start: 20221127, end: 20221127
  4. ACETAMINOPHEN\PSEUDOEPHEDRINE HYDROCHLORIDE\TRIPROLIDINE HYDROCHLORIDE [Suspect]
     Active Substance: ACETAMINOPHEN\PSEUDOEPHEDRINE HYDROCHLORIDE\TRIPROLIDINE HYDROCHLORIDE
     Indication: Influenza like illness
     Dosage: 1 DOSAGE FORM, IN TOTAL
     Route: 048
     Dates: start: 20221125, end: 20221125

REACTIONS (1)
  - Urinary retention [Recovered/Resolved]

NARRATIVE: CASE EVENT DATE: 20221127
